FAERS Safety Report 17924548 (Version 5)
Quarter: 2020Q3

REPORT INFORMATION
  Report Type: Spontaneous
  Country: IL (occurrence: IL)
  Receive Date: 20200622
  Receipt Date: 20200720
  Transmission Date: 20201105
  Serious: Yes (Death, Life-Threatening, Hospitalization, Other)
  Sender: FDA-Public Use
  Company Number: IL-DSJP-DSJ-2020-117642

PATIENT

DRUGS (6)
  1. T?DM1 [Concomitant]
     Active Substance: ADO-TRASTUZUMAB EMTANSINE
  2. TRASTUZUMAB DERUXTECAN. [Suspect]
     Active Substance: TRASTUZUMAB DERUXTECAN
     Indication: BREAST CANCER METASTATIC
     Route: 042
     Dates: start: 20200318, end: 20200521
  3. EUTHYRAX [Concomitant]
     Dosage: DOSE AND FREQUENCY UNKNOWN
  4. EUTHYRAX [Concomitant]
     Dosage: DOSE AND FREQUENCY UNKNOWN
  5. LEVETIRACETAM. [Concomitant]
     Active Substance: LEVETIRACETAM
     Dosage: DOSE AND FREQUENCY UNKNOWN
  6. LEVETIRACETAM. [Concomitant]
     Active Substance: LEVETIRACETAM
     Dosage: DOSE AND FREQUENCY UNKNOWN

REACTIONS (3)
  - Pneumonitis [Fatal]
  - Confusional state [Unknown]
  - SARS-CoV-2 test negative [Unknown]

NARRATIVE: CASE EVENT DATE: 20200604
